FAERS Safety Report 4849262-7 (Version None)
Quarter: 2005Q4

REPORT INFORMATION
  Report Type: 
  Country: None (occurrence: None)
  Receive Date: 20051207
  Receipt Date: 20051128
  Transmission Date: 20060501
  Serious: Yes (Hospitalization)
  Sender: FDA-Public Use
  Company Number: 2005S1000453

PATIENT
  Sex: Female

DRUGS (2)
  1. OXANDRIN [Suspect]
     Dosage: PO
     Route: 048
     Dates: start: 20050101
  2. GEMZAR [Suspect]
     Indication: PANCREATIC CARCINOMA
     Dates: start: 20050101

REACTIONS (2)
  - DECREASED ACTIVITY [None]
  - PULMONARY EMBOLISM [None]
